FAERS Safety Report 23098091 (Version 1)
Quarter: 2023Q4

REPORT INFORMATION
  Report Type: Spontaneous
  Country: GR (occurrence: GR)
  Receive Date: 20231023
  Receipt Date: 20231023
  Transmission Date: 20240110
  Serious: Yes (Other)
  Sender: FDA-Public Use
  Company Number: GR-FreseniusKabi-FK202308411

PATIENT
  Age: 55 Year
  Sex: Male

DRUGS (3)
  1. ADALIMUMAB [Suspect]
     Active Substance: ADALIMUMAB\ISOPROPYL ALCOHOL
     Indication: Psoriasis
     Dosage: UNK
     Route: 065
     Dates: start: 2018, end: 2020
  2. INFLIXIMAB [Suspect]
     Active Substance: INFLIXIMAB
     Indication: Psoriasis
     Route: 065
     Dates: start: 2011, end: 2018
  3. Calcipotriol betamethasone [Concomitant]
     Indication: Psoriasis
     Dosage: TOPICAL
     Route: 065

REACTIONS (1)
  - Antiphospholipid syndrome [Unknown]
